FAERS Safety Report 5067676-X (Version None)
Quarter: 2006Q3

REPORT INFORMATION
  Report Type: 
  Country: None (occurrence: None)
  Receive Date: 20060712
  Receipt Date: 20060320
  Transmission Date: 20061208
  Serious: No
  Sender: FDA-Public Use
  Company Number: A03200601556

PATIENT
  Age: 76 Year
  Sex: Male

DRUGS (4)
  1. UROXATRAL [Suspect]
     Indication: BENIGN PROSTATIC HYPERPLASIA
     Dosage: 10 MG QD - ORAL
     Route: 048
     Dates: start: 20060315, end: 20060317
  2. PROSCAR [Suspect]
     Indication: BENIGN PROSTATIC HYPERPLASIA
     Dosage: 1 DF QD - ORAL
     Route: 048
     Dates: start: 20060315, end: 20060317
  3. PRAVASTATIN SODIUM [Concomitant]
  4. TELMISARTAN [Concomitant]

REACTIONS (5)
  - ABDOMINAL PAIN UPPER [None]
  - CONTUSION [None]
  - DIZZINESS [None]
  - OEDEMA PERIPHERAL [None]
  - RASH [None]
